FAERS Safety Report 17772014 (Version 4)
Quarter: 2020Q3

REPORT INFORMATION
  Report Type: Report from Study
  Country: US (occurrence: US)
  Receive Date: 20200512
  Receipt Date: 20200726
  Transmission Date: 20201102
  Serious: Yes (Death, Hospitalization)
  Sender: FDA-Public Use
  Company Number: US-ACTELION-A-NJ2020-203176

PATIENT
  Age: 80 Year
  Sex: Female
  Weight: 38.1 kg

DRUGS (2)
  1. REVATIO [Concomitant]
     Active Substance: SILDENAFIL CITRATE
  2. VELETRI [Suspect]
     Active Substance: EPOPROSTENOL
     Indication: PULMONARY ARTERIAL HYPERTENSION
     Dosage: 18 NG/KG, PER MIN
     Route: 042

REACTIONS (6)
  - Pain in jaw [Unknown]
  - Dyspnoea exertional [Unknown]
  - Lung neoplasm malignant [Fatal]
  - Condition aggravated [Unknown]
  - Diarrhoea [Unknown]
  - Hospice care [Unknown]

NARRATIVE: CASE EVENT DATE: 202004
